FAERS Safety Report 8809103 (Version 1)
Quarter: 2012Q4

REPORT INFORMATION
  Report Type: 
  Country: PR (occurrence: PR)
  Receive Date: 20120926
  Receipt Date: 20120926
  Transmission Date: 20130627
  Serious: No
  Sender: FDA-Public Use
  Company Number: PR-BAYER-2012-086228

PATIENT
  Sex: Male

DRUGS (4)
  1. AVELOX [Suspect]
     Indication: SINUSITIS
     Dosage: 1 DF, QD
     Route: 048
  2. DOLOGESIC [DEXTROPROPOXYPHENE NAPSILATE,PARACETAMOL] [Concomitant]
  3. ADVIL [Concomitant]
  4. DECONGESTANTS AND ANTIALLERGICS [Concomitant]

REACTIONS (1)
  - Rash [Recovered/Resolved]
